FAERS Safety Report 17564053 (Version 1)
Quarter: 2020Q1

REPORT INFORMATION
  Report Type: Spontaneous
  Country: US (occurrence: US)
  Receive Date: 20200320
  Receipt Date: 20200320
  Transmission Date: 20200409
  Serious: No
  Sender: FDA-Public Use
  Company Number: US-GW PHARMA-202003USGW00978

PATIENT

DRUGS (5)
  1. FIBER [Concomitant]
     Active Substance: PSYLLIUM HUSK
     Dosage: DOSE INCREASED
     Route: 065
  2. EPIDIOLEX [Suspect]
     Active Substance: CANNABIDIOL
     Dosage: 350 MILLIGRAM
     Route: 048
  3. FIBER [Concomitant]
     Active Substance: PSYLLIUM HUSK
     Indication: PRODUCT USED FOR UNKNOWN INDICATION
     Dosage: UNK
     Route: 065
  4. EPIDIOLEX [Suspect]
     Active Substance: CANNABIDIOL
     Indication: SEIZURE
     Dosage: UNK
     Route: 048
  5. EPIDIOLEX [Suspect]
     Active Substance: CANNABIDIOL
     Dosage: 430 MILLIGRAM
     Route: 048

REACTIONS (7)
  - Constipation [Recovered/Resolved]
  - Lethargy [Recovered/Resolved]
  - Urinary retention [Recovered/Resolved]
  - Weight increased [Recovered/Resolved]
  - Hepatic enzyme increased [Recovered/Resolved]
  - Product dose omission [Recovered/Resolved]
  - Decreased appetite [Recovered/Resolved]
